FAERS Safety Report 24180792 (Version 1)
Quarter: 2024Q3

REPORT INFORMATION
  Report Type: Spontaneous
  Country: US (occurrence: US)
  Receive Date: 20240806
  Receipt Date: 20240806
  Transmission Date: 20241016
  Serious: Yes (Other)
  Sender: INCYTE
  Company Number: US-INCYTE CORPORATION-2024IN008077

PATIENT

DRUGS (2)
  1. JAKAFI [Suspect]
     Active Substance: RUXOLITINIB
     Indication: Myeloproliferative neoplasm
     Dosage: 10 MILLIGRAM, BID
     Route: 065
  2. BESREMI [Suspect]
     Active Substance: ROPEGINTERFERON ALFA-2B-NJFT
     Indication: Myeloproliferative neoplasm
     Dosage: 300 MICROGRAM, EVERY FOURTEEN DAYS
     Route: 058
     Dates: start: 20240613

REACTIONS (6)
  - Malignant melanoma [Unknown]
  - Abdominal discomfort [Unknown]
  - Bone pain [Unknown]
  - Headache [Unknown]
  - Emotional disorder [Unknown]
  - Off label use [Unknown]
